FAERS Safety Report 6985183-1 (Version None)
Quarter: 2010Q3

REPORT INFORMATION
  Report Type: 
  Country: None (occurrence: None)
  Receive Date: 20100915
  Receipt Date: 20100906
  Transmission Date: 20110219
  Serious: Yes (Hospitalization, Other)
  Sender: FDA-Public Use
  Company Number: PHHY2010NL57341

PATIENT
  Sex: Male

DRUGS (3)
  1. ZOMETA [Suspect]
     Dosage: UNK
     Dates: start: 20100315
  2. ZOMETA [Suspect]
     Dosage: UNK
     Dates: start: 20100705
  3. ZOMETA [Suspect]
     Dosage: UNK
     Dates: start: 20100803

REACTIONS (2)
  - FLANK PAIN [None]
  - RENAL DISORDER [None]
